FAERS Safety Report 13743479 (Version 1)
Quarter: 2017Q3

REPORT INFORMATION
  Report Type: Spontaneous
  Country: FR (occurrence: FR)
  Receive Date: 20170711
  Receipt Date: 20170711
  Transmission Date: 20171127
  Serious: Yes (Other)
  Sender: FDA-Public Use
  Company Number: FR-BAYER-2017-131500

PATIENT
  Age: 29 Year
  Sex: Female

DRUGS (1)
  1. MIRENA [Suspect]
     Active Substance: LEVONORGESTREL
     Indication: CONTRACEPTION
     Dosage: 20 MCG/24HR, CONT
     Route: 015
     Dates: start: 20010606, end: 20170628

REACTIONS (23)
  - Pruritus [Not Recovered/Not Resolved]
  - Pain in extremity [Not Recovered/Not Resolved]
  - Abdominal pain [Not Recovered/Not Resolved]
  - Loss of libido [Not Recovered/Not Resolved]
  - Vaginal infection [Not Recovered/Not Resolved]
  - Genital haemorrhage [Not Recovered/Not Resolved]
  - Eye disorder [Not Recovered/Not Resolved]
  - Paraesthesia [Not Recovered/Not Resolved]
  - Weight increased [Not Recovered/Not Resolved]
  - Vertigo [Not Recovered/Not Resolved]
  - Anger [Not Recovered/Not Resolved]
  - Depression [Not Recovered/Not Resolved]
  - Nausea [Not Recovered/Not Resolved]
  - Blood cholesterol increased [Not Recovered/Not Resolved]
  - Back pain [Not Recovered/Not Resolved]
  - Breast cyst [Not Recovered/Not Resolved]
  - Ovarian cyst [Not Recovered/Not Resolved]
  - Headache [Not Recovered/Not Resolved]
  - Uterine perforation [Not Recovered/Not Resolved]
  - Breast pain [Not Recovered/Not Resolved]
  - Nervousness [Not Recovered/Not Resolved]
  - Thyroid disorder [Not Recovered/Not Resolved]
  - Weight decreased [Not Recovered/Not Resolved]

NARRATIVE: CASE EVENT DATE: 2002
